FAERS Safety Report 5730658-6 (Version None)
Quarter: 2008Q2

REPORT INFORMATION
  Report Type: 
  Country: None (occurrence: None)
  Receive Date: 20080507
  Receipt Date: 20080428
  Transmission Date: 20081010
  Serious: Yes (Other)
  Sender: FDA-Public Use
  Company Number: US-WYE-H03856108

PATIENT

DRUGS (4)
  1. PREMPHASE 14/14 [Suspect]
  2. PROGESTERONE [Suspect]
  3. ESTRADIOL [Suspect]
  4. ESTRADIOL [Suspect]

REACTIONS (1)
  - BREAST CANCER METASTATIC [None]
